FAERS Safety Report 16096373 (Version 4)
Quarter: 2021Q3

REPORT INFORMATION
  Report Type: Spontaneous
  Country: CA (occurrence: CA)
  Receive Date: 20190320
  Receipt Date: 20210823
  Transmission Date: 20211014
  Serious: Yes (Hospitalization, Other)
  Sender: FDA-Public Use
  Company Number: CA-SAMSUNG BIOEPIS-SB-2019-06156

PATIENT
  Age: 41 Year
  Sex: Female
  Weight: 108 kg

DRUGS (8)
  1. DIPHENHYDRAMINE. [Concomitant]
     Active Substance: DIPHENHYDRAMINE
     Indication: PREMEDICATION
     Route: 042
  2. INFLIXIMAB [Suspect]
     Active Substance: INFLIXIMAB
     Route: 042
  3. DIPHENHYDRAMINE. [Concomitant]
     Active Substance: DIPHENHYDRAMINE
     Route: 048
  4. METHYLPREDNISOLONE. [Concomitant]
     Active Substance: METHYLPREDNISOLONE
     Route: 042
  5. GRAVOL [Concomitant]
     Active Substance: DIMENHYDRINATE
     Dosage: UNKNOWN
     Route: 065
  6. INFLIXIMAB [Suspect]
     Active Substance: INFLIXIMAB
     Indication: PSORIATIC ARTHROPATHY
     Route: 042
  7. GRAVOL [Concomitant]
     Active Substance: DIMENHYDRINATE
     Indication: PRODUCT USED FOR UNKNOWN INDICATION
     Route: 048
  8. METHYLPREDNISOLONE. [Concomitant]
     Active Substance: METHYLPREDNISOLONE
     Indication: PREMEDICATION
     Route: 042

REACTIONS (32)
  - Arthralgia [Not Recovered/Not Resolved]
  - Off label use [Not Recovered/Not Resolved]
  - Blood pressure fluctuation [Recovered/Resolved]
  - Lip swelling [Recovered/Resolved]
  - Mood altered [Not Recovered/Not Resolved]
  - Vomiting [Not Recovered/Not Resolved]
  - Erythema [Not Recovered/Not Resolved]
  - Musculoskeletal pain [Recovered/Resolved]
  - Vein rupture [Not Recovered/Not Resolved]
  - Inappropriate schedule of product administration [Not Recovered/Not Resolved]
  - Malaise [Not Recovered/Not Resolved]
  - Renal impairment [Not Recovered/Not Resolved]
  - Blood pressure increased [Not Recovered/Not Resolved]
  - Anaemia [Not Recovered/Not Resolved]
  - Drug hypersensitivity [Not Recovered/Not Resolved]
  - Pyrexia [Recovered/Resolved]
  - Injection site haemorrhage [Not Recovered/Not Resolved]
  - Body temperature increased [Not Recovered/Not Resolved]
  - Diarrhoea [Recovered/Resolved]
  - Nausea [Not Recovered/Not Resolved]
  - Discomfort [Recovered/Resolved]
  - Poor venous access [Not Recovered/Not Resolved]
  - Weight decreased [Not Recovered/Not Resolved]
  - Condition aggravated [Not Recovered/Not Resolved]
  - Anxiety [Not Recovered/Not Resolved]
  - Nervousness [Not Recovered/Not Resolved]
  - Pain in extremity [Not Recovered/Not Resolved]
  - Fatigue [Not Recovered/Not Resolved]
  - Weight increased [Not Recovered/Not Resolved]
  - Drug ineffective [Not Recovered/Not Resolved]
  - Abdominal pain [Not Recovered/Not Resolved]
  - Incorrect dose administered [Not Recovered/Not Resolved]
